FAERS Safety Report 10144108 (Version 1)
Quarter: 2014Q2

REPORT INFORMATION
  Report Type: Spontaneous
  Country: GB (occurrence: GB)
  Receive Date: 20140430
  Receipt Date: 20140430
  Transmission Date: 20141212
  Serious: Yes (Hospitalization)
  Sender: FDA-Public Use
  Company Number: GB-TEVA-476450ISR

PATIENT
  Age: 74 Year
  Sex: Female

DRUGS (2)
  1. LANSOPRAZOLE [Suspect]
     Indication: PROPHYLAXIS AGAINST GASTROINTESTINAL ULCER
     Route: 048
     Dates: start: 20140201, end: 20140307
  2. NAPROXEN [Concomitant]

REACTIONS (2)
  - Hyponatraemia [Recovered/Resolved]
  - Delirium [Unknown]
